FAERS Safety Report 6704404-3 (Version None)
Quarter: 2010Q2

REPORT INFORMATION
  Report Type: 
  Country: None (occurrence: None)
  Receive Date: 20100430
  Receipt Date: 20100422
  Transmission Date: 20101027
  Serious: Yes (Hospitalization, Other)
  Sender: FDA-Public Use
  Company Number: DE-BRACCO-000200

PATIENT
  Age: 70 Year
  Sex: Female
  Weight: 79 kg

DRUGS (9)
  1. GADOTERIDOL [Suspect]
     Indication: MAGNETIC RESONANCE CHOLANGIOPANCREATOGRAPHY
     Route: 042
  2. GADOTERIDOL [Suspect]
     Indication: LIVER FUNCTION TEST ABNORMAL
     Route: 042
  3. GADOTERIDOL [Suspect]
     Indication: ABDOMINAL PAIN UPPER
     Route: 042
  4. METOPROLOL                         /00376901/ [Concomitant]
     Dosage: 100 MG 1-0-0
     Route: 065
  5. HYDROCHLOROTHIAZIDE [Concomitant]
     Dosage: 25 MG 1-0-0
     Route: 065
  6. ATORVASTATIN CALCIUM [Concomitant]
     Dosage: 10 MG 0-0-1
     Route: 065
  7. ACETYLSALICYLIC ACID [Concomitant]
     Dosage: 100 MG 0-0-1
     Route: 065
  8. METFORMIN                          /00082701/ [Concomitant]
     Indication: TYPE 2 DIABETES MELLITUS
     Dosage: 850 MG 1-0.5-0
     Route: 065
  9. TRIAMTERENE [Concomitant]
     Dosage: 50 MG 1-0-0
     Route: 065

REACTIONS (1)
  - RENAL FAILURE ACUTE [None]
